FAERS Safety Report 13373054 (Version 1)
Quarter: 2017Q1

REPORT INFORMATION
  Report Type: Spontaneous
  Country: US (occurrence: US)
  Receive Date: 20170326
  Receipt Date: 20170326
  Transmission Date: 20170429
  Serious: Yes (Disabling, Other)
  Sender: FDA-Public Use
  Company Number: None

PATIENT
  Age: 28 Year
  Sex: Male
  Weight: 67.5 kg

DRUGS (4)
  1. PEPTO-BISMOL [Concomitant]
     Active Substance: BISMUTH SUBSALICYLATE
  2. PUFCBD REMEDY KIT (POWER) [Suspect]
     Active Substance: CANNABIDIOL
     Indication: GASTRITIS
     Route: 055
     Dates: start: 20170308, end: 20170315
  3. PUFCBD REMEDY KIT (POWER) [Suspect]
     Active Substance: CANNABIDIOL
     Indication: PAIN
     Route: 055
     Dates: start: 20170308, end: 20170315
  4. PEPCID [Concomitant]
     Active Substance: FAMOTIDINE

REACTIONS (3)
  - Gastrointestinal disorder [None]
  - Headache [None]
  - Product formulation issue [None]

NARRATIVE: CASE EVENT DATE: 20170312
